FAERS Safety Report 9125200 (Version 1)
Quarter: 2013Q1

REPORT INFORMATION
  Report Type: Spontaneous
  Country: US (occurrence: US)
  Receive Date: 20130227
  Receipt Date: 20130227
  Transmission Date: 20140127
  Serious: Yes (Other)
  Sender: FDA-Public Use
  Company Number: US-JNJFOC-20130213820

PATIENT
  Sex: 0

DRUGS (2)
  1. NICOTINE PATCH [Suspect]
     Route: 065
  2. NICOTINE PATCH [Suspect]
     Indication: SMOKING CESSATION THERAPY
     Route: 065

REACTIONS (1)
  - Drug screen positive [Unknown]
